FAERS Safety Report 8610541-9 (Version None)
Quarter: 2012Q3

REPORT INFORMATION
  Report Type: 
  Country: None (occurrence: None)
  Receive Date: 20120822
  Receipt Date: 20120808
  Transmission Date: 20120928
  Serious: Yes (Other)
  Sender: FDA-Public Use
  Company Number: DE-JNJFOC-20120809141

PATIENT
  Sex: Male
  Weight: 70 kg

DRUGS (10)
  1. XARELTO [Suspect]
     Indication: DECUBITUS ULCER
     Route: 048
     Dates: start: 20120508, end: 20120525
  2. METOPROLOL TARTRATE [Concomitant]
  3. ACETYLCYSTEINE [Concomitant]
  4. XARELTO [Suspect]
     Indication: ATRIAL FIBRILLATION
     Route: 048
     Dates: start: 20120508, end: 20120525
  5. BACLOFEN [Concomitant]
  6. FENTANYL [Concomitant]
     Route: 062
  7. ACIMETHIN [Concomitant]
  8. ESOMEPRAZOLE SODIUM [Concomitant]
  9. ENOXAPARIN SODIUM [Concomitant]
     Indication: ANTICOAGULANT THERAPY
     Route: 058
     Dates: start: 20120401
  10. XARELTO [Suspect]
     Indication: IMMOBILISATION PROLONGED
     Route: 048
     Dates: start: 20120508, end: 20120525

REACTIONS (2)
  - THROMBOCYTOPENIA [None]
  - ANAEMIA [None]
